FAERS Safety Report 14253221 (Version 1)
Quarter: 2017Q4

REPORT INFORMATION
  Report Type: Spontaneous
  Country: US (occurrence: US)
  Receive Date: 20171206
  Receipt Date: 20171206
  Transmission Date: 20180321
  Serious: No
  Sender: FDA-Public Use
  Company Number: US-SUN PHARMACEUTICAL INDUSTRIES LTD-2017US-146361

PATIENT
  Sex: Female

DRUGS (1)
  1. PHENTERMINE. [Suspect]
     Active Substance: PHENTERMINE
     Indication: WEIGHT DECREASED
     Dosage: 2 DF, DAILY
     Route: 065
     Dates: start: 20170518

REACTIONS (8)
  - Fatigue [Unknown]
  - Somnolence [Unknown]
  - Product physical issue [Unknown]
  - Drug ineffective [Unknown]
  - Headache [Unknown]
  - Product substitution issue [Unknown]
  - Hunger [Unknown]
  - Confusional state [Unknown]

NARRATIVE: CASE EVENT DATE: 201705
